FAERS Safety Report 5689214-0 (Version None)
Quarter: 2008Q1

REPORT INFORMATION
  Report Type: 
  Country: None (occurrence: None)
  Receive Date: 20080331
  Receipt Date: 20080319
  Transmission Date: 20080703
  Serious: Yes (Hospitalization, Other)
  Sender: FDA-Public Use
  Company Number: JP-ABBOTT-08P-087-0443226-00

PATIENT
  Age: 16 Year
  Sex: Male
  Weight: 51 kg

DRUGS (9)
  1. CYCLOSPORINE [Suspect]
     Indication: NEPHROTIC SYNDROME
     Dosage: 4-5 MG/KG/DAY
  2. CYCLOSPORINE [Suspect]
     Dates: start: 20050511
  3. METHYLPREDNISOLONE [Concomitant]
     Indication: NEPHROTIC SYNDROME
     Route: 042
  4. METHYLPREDNISOLONE [Concomitant]
     Dosage: PULSE THERAPY 1 G/DAY FOR 3 DAYS
     Dates: start: 20050512, end: 20050515
  5. MIZORIBINE [Concomitant]
     Indication: NEPHROTIC SYNDROME
     Dosage: NOT REPORTED
  6. MIZORIBINE [Concomitant]
     Dates: start: 20050511
  7. PREDNISOLONE [Concomitant]
     Indication: NEPHROTIC SYNDROME
     Dosage: NOT REPORTED
  8. PREDNISOLONE [Concomitant]
     Route: 048
     Dates: start: 20050511
  9. PREDNISOLONE [Concomitant]
     Route: 048

REACTIONS (2)
  - COLITIS ISCHAEMIC [None]
  - NEPHROTIC SYNDROME [None]
